FAERS Safety Report 5525703-7 (Version None)
Quarter: 2007Q4

REPORT INFORMATION
  Report Type: 
  Country: None (occurrence: None)
  Receive Date: 20071126
  Receipt Date: 20071115
  Transmission Date: 20080405
  Serious: Yes (Hospitalization)
  Sender: FDA-Public Use
  Company Number: ES-ROCHE-340792

PATIENT
  Age: 57 Year
  Sex: Female
  Weight: 60.7 kg

DRUGS (25)
  1. DACLIZUMAB [Suspect]
     Route: 042
  2. DACLIZUMAB [Suspect]
     Dosage: FORM: VIALS.
     Route: 042
     Dates: start: 20030425
  3. MYCOPHENOLATE MOFETIL [Suspect]
     Route: 048
     Dates: start: 20030425
  4. MYCOPHENOLATE MOFETIL [Suspect]
     Route: 048
     Dates: start: 20040520
  5. SIROLIMUS [Suspect]
     Route: 048
     Dates: start: 20030425
  6. PREDNISONE TAB [Suspect]
     Route: 048
  7. PREDNISONE TAB [Suspect]
     Route: 048
     Dates: start: 20030425
  8. PANTOPRAZOLE SODIUM [Concomitant]
     Route: 048
     Dates: start: 20030425
  9. FOLIC ACID [Concomitant]
     Route: 048
     Dates: start: 20030602
  10. VIT B12 [Concomitant]
     Route: 048
     Dates: start: 20030424
  11. VIT B12 [Concomitant]
     Route: 048
     Dates: start: 20030602
  12. FE [Concomitant]
     Route: 048
     Dates: start: 20030602
  13. ATORVASTATIN CALCIUM [Concomitant]
     Route: 048
     Dates: start: 20040316
  14. ATENOLOL [Concomitant]
     Route: 048
     Dates: start: 20030509
  15. TRIMETHOPRIM + SULFAMETHOXAZOLE [Concomitant]
     Route: 048
     Dates: start: 20030429
  16. LOSARTAN POTASSIUM [Concomitant]
     Route: 048
     Dates: start: 20031016
  17. SODIUM HYDROGEN PHOSPHATE [Concomitant]
     Route: 048
     Dates: start: 20030512
  18. CALCITRIOL [Concomitant]
     Route: 048
     Dates: start: 20030526
  19. DARBEPOETIN ALFA [Concomitant]
     Route: 058
     Dates: start: 20030922
  20. TORSEMIDE [Concomitant]
     Route: 048
     Dates: start: 20040417
  21. LOPERAMIDE HCL [Concomitant]
     Route: 048
     Dates: start: 20031222
  22. LORMETAZEPAM [Concomitant]
     Route: 048
     Dates: start: 20030904
  23. IRON NOS [Concomitant]
     Dosage: REPORTED AS IRON 3+ (SUCCINAL CASEINE).
     Dates: start: 20030502, end: 20050525
  24. CALCIUM FOLINATE [Concomitant]
     Dates: start: 20030424
  25. SODIUM NOS [Concomitant]
     Dosage: REPORTED AS SODIUM ALONDRONATE.
     Dates: start: 20030818, end: 20061129

REACTIONS (3)
  - ALPHA HAEMOLYTIC STREPTOCOCCAL INFECTION [None]
  - PERITONITIS [None]
  - RESPIRATORY TRACT INFECTION [None]
